FAERS Safety Report 24235499 (Version 1)
Quarter: 2024Q3

REPORT INFORMATION
  Report Type: Report from Study
  Country: BE (occurrence: BE)
  Receive Date: 20240821
  Receipt Date: 20240821
  Transmission Date: 20241017
  Serious: Yes (Death)
  Sender: ABBVIE
  Company Number: BE-ABBVIE-5889186

PATIENT
  Age: 79 Year
  Sex: Male
  Weight: 77 kg

DRUGS (16)
  1. CARBIDOPA\LEVODOPA [Suspect]
     Active Substance: CARBIDOPA\LEVODOPA
     Indication: Parkinson^s disease
     Dosage: MD: 5.0+3.0 ML, CD: 4.0 ML/H, ED:3.0 ML DURING 24 HOURS
     Route: 050
     Dates: start: 20240507, end: 20240603
  2. CARBIDOPA\LEVODOPA [Suspect]
     Active Substance: CARBIDOPA\LEVODOPA
     Route: 050
     Dates: start: 20200623
  3. CARBIDOPA\LEVODOPA [Suspect]
     Active Substance: CARBIDOPA\LEVODOPA
     Dosage: MD: 7.0+3.0 ML, CD: 4.5 ML/H, ED:3.50 ML, CND:2.5 ML/H DURING 24 HOURS
     Route: 050
     Dates: start: 20240603, end: 20240605
  4. CARBIDOPA\LEVODOPA [Suspect]
     Active Substance: CARBIDOPA\LEVODOPA
     Dosage: MD: 11.0+3.0 ML, CD: 5.5 ML/H, CND:2.5 ML/H DURING 24 HOURS
     Route: 050
     Dates: start: 20240614
  5. CARBIDOPA\LEVODOPA [Suspect]
     Active Substance: CARBIDOPA\LEVODOPA
     Dosage: MD: 5.0+3.0 ML, CD: 4.0 ML/H, ED:3.0 ML DURING 24 HOURS
     Route: 050
     Dates: start: 20240429, end: 20240507
  6. CARBIDOPA\LEVODOPA [Suspect]
     Active Substance: CARBIDOPA\LEVODOPA
     Dosage: MD: 4.0+3.0 ML, CD: 3.7 ML/H, ED:3.0 ML DURING 24 HOURS
     Route: 050
     Dates: start: 20240403, end: 20240429
  7. CARBIDOPA\LEVODOPA [Suspect]
     Active Substance: CARBIDOPA\LEVODOPA
     Dosage: MD: 9.0+3.0 ML, CD: 5.0 ML/H, CND:2.5 ML/H DURING 24 HOURS
     Route: 050
     Dates: start: 20240605, end: 20240614
  8. RIVOTRIL [Concomitant]
     Active Substance: CLONAZEPAM
     Indication: Product used for unknown indication
     Dosage: FREQUENCY TEXT: AT 21 HOURS
  9. BENSERAZIDE\LEVODOPA [Concomitant]
     Active Substance: BENSERAZIDE\LEVODOPA
     Indication: Product used for unknown indication
     Dosage: FREQUENCY TEXT: AT 22:00
  10. BENSERAZIDE\LEVODOPA [Concomitant]
     Active Substance: BENSERAZIDE\LEVODOPA
     Indication: Product used for unknown indication
     Dosage: FORM STRENGTH: 250 MG, FREQUENCY TEXT: AT 07:00,09:00,13:00, 17:00
  11. PRAMIPEXOLE [Concomitant]
     Active Substance: PRAMIPEXOLE\PRAMIPEXOLE DIHYDROCHLORIDE
     Indication: Product used for unknown indication
     Dosage: FORM STRENGTH: 1.05 MG, FREQUENCY TEXT: AT 07:00
  12. ELIQUIS [Concomitant]
     Active Substance: APIXABAN
     Indication: Product used for unknown indication
  13. STALEVO [Concomitant]
     Active Substance: CARBIDOPA\ENTACAPONE\LEVODOPA
     Indication: Product used for unknown indication
     Dosage: FORM STRENGTH: 150 MG FREQUENCY TEXT: AT 07:00, 11:00, 15:00, 19:00?FORM STRENGTH: 100 MG, FREQUE...
  14. XADAGO [Concomitant]
     Active Substance: SAFINAMIDE MESYLATE
     Indication: Product used for unknown indication
     Dosage: FORM STRENGTH: 50 MG
  15. Pantomed [Concomitant]
     Indication: Product used for unknown indication
  16. METHYLPHENIDATE HYDROCHLORIDE [Concomitant]
     Active Substance: METHYLPHENIDATE HYDROCHLORIDE
     Indication: Product used for unknown indication
     Dosage: FREQUENCY TEXT:  OVERNIGHT AS NEEDED

REACTIONS (1)
  - Death [Fatal]

NARRATIVE: CASE EVENT DATE: 20240808
